FAERS Safety Report 10926988 (Version 1)
Quarter: 2015Q1

REPORT INFORMATION
  Report Type: Spontaneous
  Country: CN (occurrence: CN)
  Receive Date: 20150318
  Receipt Date: 20150318
  Transmission Date: 20150721
  Serious: Yes (Other)
  Sender: FDA-Public Use
  Company Number: CN-ASTRAZENECA-2015SE23696

PATIENT
  Age: 9806 Day
  Sex: Female
  Weight: 55 kg

DRUGS (3)
  1. LEVOFLOXACIN LACTATE [Suspect]
     Active Substance: LEVOFLOXACIN
     Indication: ANTIBIOTIC PROPHYLAXIS
     Route: 048
     Dates: start: 20140722, end: 20140724
  2. TRIMEBUTINE MALEATE [Suspect]
     Active Substance: TRIMEBUTINE MALEATE
     Indication: PROPHYLAXIS AGAINST GASTROINTESTINAL ULCER
     Route: 048
     Dates: start: 20140722, end: 20140724
  3. ESOMEPRAZOLE MAGNESIUM. [Suspect]
     Active Substance: ESOMEPRAZOLE MAGNESIUM
     Indication: ACID BASE BALANCE ABNORMAL
     Route: 048
     Dates: start: 20140722, end: 20140724

REACTIONS (8)
  - Asthenia [Recovering/Resolving]
  - Hiccups [Recovering/Resolving]
  - Anaphylactoid reaction [Recovering/Resolving]
  - Dizziness [Recovering/Resolving]
  - Diplopia [Recovering/Resolving]
  - Headache [Recovering/Resolving]
  - Vision blurred [Recovering/Resolving]
  - Chest discomfort [Recovering/Resolving]

NARRATIVE: CASE EVENT DATE: 20140723
